FAERS Safety Report 6342309-0 (Version None)
Quarter: 2009Q3

REPORT INFORMATION
  Report Type: 
  Country: None (occurrence: None)
  Receive Date: 20090907
  Receipt Date: 20070924
  Transmission Date: 20100115
  Serious: Yes (Other)
  Sender: FDA-Public Use
  Company Number: US-ASTRAZENECA-2006UW23283

PATIENT
  Age: 517 Month
  Sex: Female

DRUGS (12)
  1. SEROQUEL [Suspect]
     Indication: DEPRESSION
     Route: 048
     Dates: start: 20040101
  2. SEROQUEL [Suspect]
     Dosage: 200 MG - 600 MG
     Route: 048
     Dates: start: 20050829
  3. GEODON [Concomitant]
     Dosage: DOSE - 80 MG - 160 MG DAILY
     Route: 048
     Dates: start: 20051014
  4. HYDROCHLOROTHIAZIDE [Concomitant]
     Dates: start: 20060728
  5. WARFARIN SOD [Concomitant]
     Dates: start: 20060808
  6. ALPRAZOLAM [Concomitant]
     Dosage: STRENGTH - 1 MG, 2 MG
     Dates: start: 20060808
  7. TRAZODONE [Concomitant]
     Dosage: STRENGTH - 100 MG, 150 MG
     Dates: start: 20060818
  8. CLONIDINE [Concomitant]
     Dates: start: 20060824
  9. DIOVAN [Concomitant]
     Dates: start: 20060925
  10. PROMETHAZINE HCL [Concomitant]
  11. SIMVASTATIN [Concomitant]
  12. ZOLPIDEM TARTRATE [Concomitant]

REACTIONS (4)
  - DIABETES MELLITUS [None]
  - DIABETIC NEUROPATHY [None]
  - PANCREATITIS [None]
  - PANCREATITIS ACUTE [None]
